FAERS Safety Report 8726934 (Version 2)
Quarter: 2012Q4

REPORT INFORMATION
  Report Type: 
  Country: JP (occurrence: JP)
  Receive Date: 20120816
  Receipt Date: 20121112
  Transmission Date: 20130627
  Serious: Yes (Hospitalization)
  Sender: FDA-Public Use
  Company Number: JP-TEVA-351353USA

PATIENT
  Age: 65 Year
  Sex: Male

DRUGS (10)
  1. TREANDA [Suspect]
     Indication: NODAL MARGINAL ZONE B-CELL LYMPHOMA
     Route: 042
     Dates: start: 20120511, end: 20120706
  2. RITUXIMAB [Suspect]
     Indication: B-CELL LYMPHOMA
     Dates: start: 20110511, end: 20120704
  3. PREDNISOLONE SODIUM SUCCINATE [Concomitant]
     Indication: B-CELL LYMPHOMA
     Dates: start: 20120609
  4. SULFAMETHOXAZOLE W/TRIMETHOPRIM [Concomitant]
     Indication: ANTIFUNGAL PROPHYLAXIS
  5. TAMSULOSIN HYDROCHLORIDE [Concomitant]
     Indication: BENIGN PROSTATIC HYPERPLASIA
  6. ALLOPURINOL [Concomitant]
     Indication: HYPERURICAEMIA
  7. BETAMETHASONE PLUS D-CHLORPHENIRAMINE MALEATE [Concomitant]
     Indication: RASH
  8. PREDNISOLONE [Concomitant]
     Indication: RASH
  9. MECOBALAMIN [Concomitant]
     Indication: NEUROPATHY PERIPHERAL
  10. AMIKACIN SULFATE [Concomitant]
     Indication: FEBRILE NEUTROPENIA

REACTIONS (6)
  - Hepatosplenomegaly [Recovered/Resolved]
  - Pneumonia cytomegaloviral [Recovering/Resolving]
  - Hyponatraemia [Unknown]
  - Full blood count decreased [Recovered/Resolved]
  - Febrile neutropenia [Recovered/Resolved]
  - White blood cell count decreased [Recovered/Resolved]
